FAERS Safety Report 19714571 (Version 1)
Quarter: 2021Q3

REPORT INFORMATION
  Report Type: Spontaneous
  Country: US (occurrence: US)
  Receive Date: 20210818
  Receipt Date: 20210818
  Transmission Date: 20211014
  Serious: Yes (Other)
  Sender: FDA-Public Use
  Company Number: US-DRREDDYS-SPO/USA/21/0138912

PATIENT
  Age: 71 Year
  Sex: Female

DRUGS (7)
  1. NEXIUM [Concomitant]
     Active Substance: ESOMEPRAZOLE MAGNESIUM
     Indication: GASTROOESOPHAGEAL REFLUX DISEASE
  2. NP THYROID [Concomitant]
     Active Substance: LEVOTHYROXINE\LIOTHYRONINE
     Indication: HYPERTHYROIDISM
     Route: 048
     Dates: start: 201809
  3. NP THYROID [Concomitant]
     Active Substance: LEVOTHYROXINE\LIOTHYRONINE
     Route: 048
     Dates: start: 201901
  4. NP THYROID [Concomitant]
     Active Substance: LEVOTHYROXINE\LIOTHYRONINE
     Dosage: 15 MG TABLET ONE DAY AND 30 MG TABLETS EVERY OTHER DAY ALTERNATING THE TWO DOSES
  5. LEVOTHYROXINE SODIUM. [Suspect]
     Active Substance: LEVOTHYROXINE SODIUM
     Indication: PRODUCT USED FOR UNKNOWN INDICATION
     Dosage: STRENGTH: 100 MCG/VIAL
  6. NP THYROID [Concomitant]
     Active Substance: LEVOTHYROXINE\LIOTHYRONINE
     Dosage: 30 MG FOR ONE DAY AND THEN 15 MG FOR TWO DAYS, REPEATING THE TWO DAYS/ONE DAY CYCLE
  7. NP THYROID [Concomitant]
     Active Substance: LEVOTHYROXINE\LIOTHYRONINE
     Dosage: 15 MG FOR 2 DAYS
     Dates: start: 201904

REACTIONS (6)
  - Lip swelling [Unknown]
  - Nervous system disorder [Unknown]
  - Gait disturbance [Unknown]
  - Peripheral coldness [Unknown]
  - Hypersensitivity [Unknown]
  - Neuropathy peripheral [Unknown]
